FAERS Safety Report 25395279 (Version 2)
Quarter: 2025Q3

REPORT INFORMATION
  Report Type: Spontaneous
  Country: US (occurrence: US)
  Receive Date: 20250604
  Receipt Date: 20250912
  Transmission Date: 20251020
  Serious: Yes (Life-Threatening, Hospitalization, Other)
  Sender: JUBILANT
  Company Number: None

PATIENT
  Age: 45 Year
  Sex: Male

DRUGS (11)
  1. PREGABALIN [Suspect]
     Active Substance: PREGABALIN
     Indication: Drug use disorder
     Dosage: 200 MG THREE TIMES A DAY FOR SEVERAL WEEKS
  2. SUBOXONE [Suspect]
     Active Substance: BUPRENORPHINE HYDROCHLORIDE\NALOXONE HYDROCHLORIDE
     Indication: Drug use disorder
     Dosage: UNK UNK, ONCE PER DAY, 16 MG/4 MG DAILY
     Route: 065
  3. AMITRIPTYLINE [Suspect]
     Active Substance: AMITRIPTYLINE
     Indication: Drug use disorder
     Dosage: 75 MG, ONCE PER DAY
     Route: 065
  4. FENTANYL [Suspect]
     Active Substance: FENTANYL
     Indication: Sedation
     Route: 042
  5. FENTANYL [Suspect]
     Active Substance: FENTANYL
     Dosage: 0.7 ?G/KG, PER HOUR, DOSES ADJUSTED TO MAINTAIN RICHMOND AGITATION-SEDATION SCALE (RASS) AT ?4, RANG
     Route: 065
  6. FENTANYL [Suspect]
     Active Substance: FENTANYL
     Dosage: 1 ?G/KG, PER HOUR DOSES ADJUSTED TO MAINTAIN RICHMOND AGITATION-SEDATION SCALE (RASS) AT ?4, RANGING
     Route: 065
  7. PROPOFOL [Concomitant]
     Active Substance: PROPOFOL
     Indication: Sedation
     Dosage: DOSE OF 3 MG/KG
  8. PROPOFOL [Concomitant]
     Active Substance: PROPOFOL
     Dosage: DOSES ADJUSTED TO MAINTAIN RICHMOND AGITATION-SEDATION SCALE (RASS) AT ?4, RANGING FROM 1 TO 3 MG/KG
  9. PROPOFOL [Concomitant]
     Active Substance: PROPOFOL
     Dosage: 3 ?G/KG, PER HOUR, DOSES ADJUSTED TO MAINTAIN RICHMOND AGITATION-SEDATION SCALE (RASS) AT ?4, RANGIN
     Route: 065
  10. CEFTRIAXONE [Concomitant]
     Active Substance: CEFTRIAXONE
     Indication: Product used for unknown indication
     Route: 042
  11. AZITHROMYCIN [Concomitant]
     Active Substance: AZITHROMYCIN
     Indication: Product used for unknown indication
     Route: 048

REACTIONS (1)
  - Serotonin syndrome [Recovered/Resolved]
